FAERS Safety Report 6537789-1 (Version None)
Quarter: 2010Q1

REPORT INFORMATION
  Report Type: 
  Country: None (occurrence: None)
  Receive Date: 20100114
  Receipt Date: 20100107
  Transmission Date: 20100710
  Serious: Yes (Hospitalization)
  Sender: FDA-Public Use
  Company Number: SE-PFIZER INC-2009306992

PATIENT
  Sex: Male

DRUGS (4)
  1. NORVASC [Suspect]
     Indication: HYPERTENSION
     Dosage: 5 MG, 1X/DAY
     Dates: start: 19990201
  2. PHYSIOTENS [Concomitant]
     Indication: HYPERTENSION
     Dosage: 0.2 MG, 1X/DAY
  3. GLUCOSAMINE [Concomitant]
     Indication: OSTEOARTHRITIS
     Dosage: 400 MG, AS NEEDED
  4. TRADIL [Concomitant]
     Indication: OSTEOARTHRITIS
     Dosage: UNK

REACTIONS (1)
  - SENSORY DISTURBANCE [None]
